FAERS Safety Report 7078577-X (Version None)
Quarter: 2010Q4

REPORT INFORMATION
  Report Type: 
  Country: None (occurrence: None)
  Receive Date: 20101102
  Receipt Date: 20101025
  Transmission Date: 20110411
  Serious: Yes (Life-Threatening, Hospitalization, Other)
  Sender: FDA-Public Use
  Company Number: SI-BRISTOL-MYERS SQUIBB COMPANY-15361314

PATIENT
  Age: 55 Year
  Sex: Male

DRUGS (4)
  1. ERBITUX [Suspect]
     Indication: COLORECTAL CANCER METASTATIC
     Route: 042
     Dates: start: 20100623, end: 20100909
  2. IRINOTECAN HCL [Suspect]
     Indication: COLORECTAL CANCER METASTATIC
     Dosage: PREVIOUSLY TREATED FROM 29-JAN-2008 TO 27-JUN-2008; LAST DOSE-27AUG2010
     Route: 042
  3. XELODA [Suspect]
     Indication: COLORECTAL CANCER METASTATIC
     Dosage: PREVIOUSLY TREATED FROM 29-JAN-2008 TO 27-JUN-2008; LAST DOSE-27AUG2010
     Route: 042
  4. RAMIPRIL [Concomitant]
     Indication: HYPERTENSION

REACTIONS (1)
  - DERMATITIS ACNEIFORM [None]
